FAERS Safety Report 10779718 (Version 3)
Quarter: 2015Q1

REPORT INFORMATION
  Report Type: Spontaneous
  Country: MX (occurrence: MX)
  Receive Date: 20150210
  Receipt Date: 20150212
  Transmission Date: 20150721
  Serious: Yes (Death)
  Sender: FDA-Public Use
  Company Number: MX-PFIZER INC-2015053698

PATIENT
  Age: 87 Year
  Sex: Female
  Weight: 72 kg

DRUGS (7)
  1. CLORURO DE POTASIO [Concomitant]
     Indication: BLOOD IRON ABNORMAL
     Dosage: 1 DF, EVERY THREE DAYS
     Dates: start: 2012
  2. ATIVAN [Suspect]
     Active Substance: LORAZEPAM
     Dosage: 1/2 TABLET IN THE NIGHT
  3. LASIX [Concomitant]
     Active Substance: FUROSEMIDE
     Dosage: UNK, 1X/DAY, 3 PER WEEK
  4. EUGLUCON [Concomitant]
     Active Substance: GLYBURIDE
     Dosage: 1/2 TABLET IN THE FOOD
     Dates: start: 2012
  5. ALTRULINE [Suspect]
     Active Substance: SERTRALINE HYDROCHLORIDE
     Indication: DEPRESSION
     Dosage: 2 TABLETS OF 50 MG IN THE MORNING
     Dates: start: 2004, end: 20141203
  6. NORVASC [Suspect]
     Active Substance: AMLODIPINE BESYLATE
     Dosage: UNK, 1X/DAY
  7. DILATREND [Concomitant]
     Active Substance: CARVEDILOL
     Dosage: UNK, 1X/DAY

REACTIONS (2)
  - Myocardial infarction [Fatal]
  - Hyperkalaemia [Fatal]

NARRATIVE: CASE EVENT DATE: 20141203
